FAERS Safety Report 20227445 (Version 1)
Quarter: 2021Q4

REPORT INFORMATION
  Report Type: Spontaneous
  Country: GB (occurrence: GB)
  Receive Date: 20211224
  Receipt Date: 20211224
  Transmission Date: 20220303
  Serious: Yes (Hospitalization)
  Sender: FDA-Public Use
  Company Number: GB-VERTEX PHARMACEUTICALS-2021-020091

PATIENT
  Sex: Female

DRUGS (7)
  1. ELEXACAFTOR\IVACAFTOR\TEZACAFTOR [Suspect]
     Active Substance: ELEXACAFTOR\IVACAFTOR\TEZACAFTOR
     Indication: Cystic fibrosis
     Dosage: TWO ORANGE TABLETS IN THE MORNING (75MG IVACAFTOR/50MG TEZACAFTOR/100MG ELEXACAFTOR)
     Route: 048
  2. KALYDECO [Suspect]
     Active Substance: IVACAFTOR
     Indication: Cystic fibrosis
     Dosage: UNK, QD
     Route: 048
  3. VENTOLIN [Concomitant]
     Active Substance: ALBUTEROL SULFATE
  4. BECLOMETHASONE\FORMOTEROL [Concomitant]
     Active Substance: BECLOMETHASONE\FORMOTEROL
  5. VITAMIN E [Concomitant]
     Active Substance: .ALPHA.-TOCOPHEROL
  6. AZITHROMYCIN [Concomitant]
     Active Substance: AZITHROMYCIN
  7. CREON [Concomitant]
     Active Substance: PANCRELIPASE AMYLASE\PANCRELIPASE LIPASE\PANCRELIPASE PROTEASE

REACTIONS (1)
  - Sinus operation [Unknown]

NARRATIVE: CASE EVENT DATE: 20210101
